FAERS Safety Report 14951997 (Version 3)
Quarter: 2018Q3

REPORT INFORMATION
  Report Type: Spontaneous
  Country: DE (occurrence: DE)
  Receive Date: 20180530
  Receipt Date: 20180713
  Transmission Date: 20181010
  Serious: Yes (Hospitalization, Other)
  Sender: FDA-Public Use
  Company Number: DE-PFIZER INC-2018215841

PATIENT
  Age: 62 Year
  Sex: Female
  Weight: 58 kg

DRUGS (8)
  1. NIVOLUMAB [Suspect]
     Active Substance: NIVOLUMAB
     Dosage: 3 MG/KG, ACCORDING TO SCHEDULE
     Route: 042
  2. LEVOTHYROXINE SODIUM. [Concomitant]
     Active Substance: LEVOTHYROXINE SODIUM
     Dosage: 100 UG, 1?0?0?0
     Route: 048
  3. LACTULOSE. [Concomitant]
     Active Substance: LACTULOSE
     Dosage: 6.5 G, 1?0?0?0
     Route: 048
  4. DENOSUMAB [Concomitant]
     Active Substance: DENOSUMAB
     Dosage: 120 MG, ACCORDING TO SCHEDULE
     Route: 042
  5. IBUPROFEN. [Suspect]
     Active Substance: IBUPROFEN
     Dosage: 1DF=600 MG, 0.5?0.5?0.5?0
     Route: 048
  6. METAMIZOLE [Suspect]
     Active Substance: METAMIZOLE
     Dosage: 500 MG, 1?1?1?1
     Route: 048
  7. COLECALCIFEROL [Concomitant]
     Active Substance: CHOLECALCIFEROL
     Dosage: 500 IU, 1?0?0?0
     Route: 048
  8. ENOXAPARIN [Concomitant]
     Active Substance: ENOXAPARIN
     Dosage: 0.4 ML, 0?0?1?0
     Route: 058

REACTIONS (5)
  - Dermatitis bullous [Unknown]
  - Pruritus [Unknown]
  - General physical health deterioration [Unknown]
  - Dyspnoea [Unknown]
  - Blister [Unknown]
